FAERS Safety Report 14373538 (Version 2)
Quarter: 2018Q1

REPORT INFORMATION
  Report Type: Spontaneous
  Country: US (occurrence: US)
  Receive Date: 20180110
  Receipt Date: 20180116
  Transmission Date: 20180509
  Serious: Yes (Hospitalization, Other)
  Sender: FDA-Public Use
  Company Number: US-JAZZ-2018-US-000125

PATIENT
  Age: 61 Year
  Sex: Female

DRUGS (2)
  1. XYREM [Suspect]
     Active Substance: SODIUM OXYBATE
     Indication: NARCOLEPSY
     Route: 048
  2. ACETAMINOPHEN. [Suspect]
     Active Substance: ACETAMINOPHEN
     Indication: PRODUCT USED FOR UNKNOWN INDICATION

REACTIONS (9)
  - Bradycardia [Unknown]
  - Tachycardia [Unknown]
  - Abdominal pain [Unknown]
  - Analgesic drug level increased [Recovering/Resolving]
  - Drug abuse [Unknown]
  - Nausea [Unknown]
  - Toxicity to various agents [Unknown]
  - Hypertension [Unknown]
  - Headache [Unknown]
